FAERS Safety Report 14435057 (Version 1)
Quarter: 2018Q1

REPORT INFORMATION
  Report Type: Spontaneous
  Country: US (occurrence: US)
  Receive Date: 20180124
  Receipt Date: 20180124
  Transmission Date: 20180509
  Serious: Yes (Hospitalization)
  Sender: FDA-Public Use
  Company Number: None

PATIENT
  Age: 78 Year
  Sex: Male
  Weight: 81.37 kg

DRUGS (1)
  1. TRAMADOL. [Suspect]
     Active Substance: TRAMADOL
     Indication: PAIN
     Dates: start: 20170808, end: 20171004

REACTIONS (3)
  - Pericarditis [None]
  - Hyponatraemia [None]
  - Therapy cessation [None]

NARRATIVE: CASE EVENT DATE: 20171013
